FAERS Safety Report 6611016-9 (Version None)
Quarter: 2010Q1

REPORT INFORMATION
  Report Type: 
  Country: None (occurrence: None)
  Receive Date: 20100222
  Receipt Date: 20100210
  Transmission Date: 20100710
  Serious: Yes (Hospitalization)
  Sender: FDA-Public Use
  Company Number: 2010AL000942

PATIENT
  Age: 15 Year
  Sex: Male

DRUGS (2)
  1. IBUPROFEN [Suspect]
     Indication: OVERDOSE
     Dosage: 32 DF; X1; PO
     Route: 048
     Dates: start: 20100111, end: 20100111
  2. CONCERTA [Concomitant]

REACTIONS (2)
  - MULTIPLE DRUG OVERDOSE [None]
  - SINUS TACHYCARDIA [None]
